FAERS Safety Report 5477857-9 (Version None)
Quarter: 2007Q4

REPORT INFORMATION
  Report Type: 
  Country: None (occurrence: None)
  Receive Date: 20071004
  Receipt Date: 20071001
  Transmission Date: 20080405
  Serious: Yes (Death)
  Sender: FDA-Public Use
  Company Number: BR-BOEHRINGER INGELHEIM PHARMACEUTICALS, INC.-2007-BP-21875BR

PATIENT
  Age: 69 Year
  Sex: Male

DRUGS (4)
  1. SIFROL [Suspect]
     Route: 048
     Dates: end: 20070927
  2. MANTIDAN [Concomitant]
     Route: 048
  3. SINIMED [Concomitant]
  4. A MEDICINE [Concomitant]
     Indication: DEPRESSION

REACTIONS (1)
  - SKIN CANCER [None]
